FAERS Safety Report 11492811 (Version 2)
Quarter: 2015Q3

REPORT INFORMATION
  Report Type: Spontaneous
  Country: CZ (occurrence: CZ)
  Receive Date: 20150911
  Receipt Date: 20150930
  Transmission Date: 20151125
  Serious: Yes (Other)
  Sender: FDA-Public Use
  Company Number: CZ-AMGEN-CZESP2015092866

PATIENT
  Age: 52 Year
  Sex: Female
  Weight: 64 kg

DRUGS (3)
  1. XGEVA [Suspect]
     Active Substance: DENOSUMAB
     Indication: METASTASES TO BONE
     Dosage: 120 MG, QMO
     Route: 058
     Dates: start: 20131206, end: 20141128
  2. VINCRISTINE [Concomitant]
     Active Substance: VINCRISTINE
     Indication: METASTASIS
     Dosage: UNK UNK, QWK
     Dates: start: 20131108, end: 20140424
  3. CAPECITABINE. [Concomitant]
     Active Substance: CAPECITABINE
     Indication: METASTASIS
     Dosage: UNK, QWK
     Dates: start: 20131108, end: 20140424

REACTIONS (2)
  - Osteonecrosis of jaw [Recovered/Resolved]
  - Tooth extraction [Unknown]

NARRATIVE: CASE EVENT DATE: 20141229
